FAERS Safety Report 5224386-3 (Version None)
Quarter: 2007Q1

REPORT INFORMATION
  Report Type: 
  Country: None (occurrence: None)
  Receive Date: 20070130
  Receipt Date: 20070115
  Transmission Date: 20070707
  Serious: No
  Sender: FDA-Public Use
  Company Number: GBWYE278705JAN06

PATIENT
  Sex: Female
  Weight: 58 kg

DRUGS (7)
  1. ENBREL [Suspect]
     Indication: RHEUMATOID ARTHRITIS
     Route: 058
     Dates: start: 20040712, end: 20041101
  2. REMICADE [Suspect]
     Indication: RHEUMATOID ARTHRITIS
     Route: 042
     Dates: start: 20020513, end: 20040305
  3. PREDNISOLONE [Suspect]
     Indication: RHEUMATOID ARTHRITIS
     Route: 048
     Dates: start: 19960101
  4. CO-DYDRAMOL [Concomitant]
     Indication: ARTHRALGIA
     Dosage: 2 TABLET EVERY 1 PRN
     Route: 048
  5. ZOPICLONE [Concomitant]
     Indication: SLEEP DISORDER
     Dosage: UNKNOWN
     Route: 048
  6. FOSAMAX [Concomitant]
     Route: 048
     Dates: start: 20020101
  7. LISINOPRIL [Concomitant]
     Indication: HYPERTENSION
     Dosage: UNKNOWN
     Route: 048

REACTIONS (2)
  - BASAL CELL CARCINOMA [None]
  - ECZEMA [None]
